FAERS Safety Report 11320446 (Version 1)
Quarter: 2015Q3

REPORT INFORMATION
  Report Type: Spontaneous
  Country: US (occurrence: None)
  Receive Date: 20150728
  Receipt Date: 20150728
  Transmission Date: 20151125
  Serious: Yes (Other)
  Sender: FDA-Public Use
  Company Number: None

PATIENT
  Age: 21 Year
  Sex: Male
  Weight: 74.39 kg

DRUGS (1)
  1. DEPO-TESTOSTERONE [Suspect]
     Active Substance: TESTOSTERONE CYPIONATE
     Indication: SEXUAL DYSFUNCTION
     Route: 028
     Dates: start: 20150703, end: 20150710

REACTIONS (6)
  - Incorrect dose administered [None]
  - Cellulitis [None]
  - Injection site erythema [None]
  - Injection site swelling [None]
  - Pain in extremity [None]
  - Injection site induration [None]

NARRATIVE: CASE EVENT DATE: 20150703
